FAERS Safety Report 8295114-2 (Version None)
Quarter: 2012Q2

REPORT INFORMATION
  Report Type: 
  Country: None (occurrence: None)
  Receive Date: 20120418
  Receipt Date: 20120403
  Transmission Date: 20120825
  Serious: Yes (Hospitalization)
  Sender: FDA-Public Use
  Company Number: DE-ROCHE-1044652

PATIENT
  Sex: Female
  Weight: 86 kg

DRUGS (9)
  1. HERCEPTIN [Suspect]
     Indication: BREAST CANCER
     Route: 042
     Dates: start: 20120227, end: 20120229
  2. PACLITAXEL [Suspect]
     Route: 042
     Dates: start: 20120305
  3. DOXORUBICIN HYDROCHLORIDE [Suspect]
     Route: 042
     Dates: start: 20120305
  4. LAPATINIB [Suspect]
     Indication: BREAST CANCER
     Route: 048
     Dates: start: 20120227
  5. PANTOPRAZOLE [Concomitant]
  6. HERCEPTIN [Suspect]
     Route: 042
     Dates: start: 20120319
  7. PACLITAXEL [Suspect]
     Indication: BREAST CANCER
     Route: 042
     Dates: start: 20120227, end: 20120229
  8. DOXORUBICIN HYDROCHLORIDE [Suspect]
     Indication: BREAST CANCER
     Route: 042
     Dates: start: 20120227, end: 20120229
  9. NEUPOGEN [Concomitant]
     Dates: start: 20120228, end: 20120303

REACTIONS (1)
  - THROMBOPHLEBITIS [None]
